FAERS Safety Report 8593060-8 (Version None)
Quarter: 2012Q3

REPORT INFORMATION
  Report Type: 
  Country: None (occurrence: None)
  Receive Date: 20120814
  Receipt Date: 20120808
  Transmission Date: 20120928
  Serious: Yes (Hospitalization)
  Sender: FDA-Public Use
  Company Number: JP-GLAXOSMITHKLINE-B0807375A

PATIENT
  Sex: Female
  Weight: 72 kg

DRUGS (19)
  1. LAMICTAL [Suspect]
     Indication: BIPOLAR DISORDER
     Dosage: 25MG TWICE PER DAY
     Route: 048
     Dates: start: 20120419
  2. MYONAL [Concomitant]
     Dosage: 150MG PER DAY
     Route: 048
  3. LAMICTAL [Suspect]
     Dosage: 50MG PER DAY
     Route: 048
     Dates: end: 20120524
  4. SEROQUEL [Concomitant]
     Indication: BIPOLAR DISORDER
     Dosage: 1400MG PER DAY
     Route: 048
  5. CHINESE MEDICINE [Concomitant]
     Dosage: 75G PER DAY
     Route: 048
     Dates: start: 20120301
  6. NEUROTROPIN [Concomitant]
     Dosage: 12IU PER DAY
     Route: 048
  7. CABERGOLINE [Concomitant]
     Dosage: .5MG PER DAY
     Route: 048
  8. URITOS [Concomitant]
     Dosage: .2MG PER DAY
     Route: 048
  9. TEGRETOL [Concomitant]
     Indication: BIPOLAR DISORDER
     Dosage: 400MG PER DAY
     Route: 048
     Dates: start: 20111201, end: 20120418
  10. ROHYPNOL [Concomitant]
     Dosage: .5MG PER DAY
     Route: 048
  11. LAMICTAL [Suspect]
     Route: 048
  12. AMOBAN [Concomitant]
     Dosage: 7.5MG PER DAY
     Route: 048
  13. MAGMITT [Concomitant]
     Dosage: 990G PER DAY
     Route: 048
  14. AKINETON [Concomitant]
     Dosage: 4MG PER DAY
     Route: 048
  15. MARZULENE-S [Concomitant]
     Dosage: 1.5G PER DAY
     Route: 048
  16. MIRABEGRON [Concomitant]
     Dosage: 50MG PER DAY
     Route: 048
  17. LITHIUM CARBONATE [Concomitant]
     Indication: BIPOLAR DISORDER
     Dosage: 1200MG PER DAY
     Route: 048
  18. DEPAKENE [Concomitant]
     Indication: BIPOLAR DISORDER
     Dosage: 2000MG PER DAY
     Route: 048
  19. PURSENNID [Concomitant]
     Dosage: 24G PER DAY
     Route: 048

REACTIONS (18)
  - DECREASED APPETITE [None]
  - DRUG RASH WITH EOSINOPHILIA AND SYSTEMIC SYMPTOMS [None]
  - ALANINE AMINOTRANSFERASE INCREASED [None]
  - RENAL IMPAIRMENT [None]
  - HYPERNATRAEMIA [None]
  - BLOOD ALBUMIN DECREASED [None]
  - HEPATIC FUNCTION ABNORMAL [None]
  - PROTEIN TOTAL DECREASED [None]
  - ASPARTATE AMINOTRANSFERASE INCREASED [None]
  - PYREXIA [None]
  - DERMATITIS EXFOLIATIVE [None]
  - BLOOD LACTATE DEHYDROGENASE INCREASED [None]
  - WHITE BLOOD CELL COUNT INCREASED [None]
  - ERYTHEMA [None]
  - RASH [None]
  - LYMPHOCYTE MORPHOLOGY ABNORMAL [None]
  - EOSINOPHIL PERCENTAGE INCREASED [None]
  - LYMPHOCYTE PERCENTAGE DECREASED [None]
